FAERS Safety Report 9121301 (Version 2)
Quarter: 2013Q1

REPORT INFORMATION
  Report Type: Spontaneous
  Country: SE (occurrence: SE)
  Receive Date: 20130225
  Receipt Date: 20130318
  Transmission Date: 20140127
  Serious: Yes (Death)
  Sender: FDA-Public Use
  Company Number: SE-ASTRAZENECA-2013SE12154

PATIENT
  Age: 87 Year
  Sex: Male

DRUGS (12)
  1. BRILIQUE [Suspect]
     Indication: ACUTE MYOCARDIAL INFARCTION
     Route: 048
     Dates: start: 20121207, end: 20121208
  2. BRILIQUE [Suspect]
     Indication: HYPERTONIA
     Route: 048
     Dates: start: 20121207, end: 20121208
  3. TROMBYL [Suspect]
     Indication: ACUTE MYOCARDIAL INFARCTION
     Route: 048
     Dates: start: 20110131, end: 20121208
  4. TROMBYL [Suspect]
     Indication: HYPERTONIA
     Route: 048
     Dates: start: 20110131, end: 20121208
  5. ARIXTRA [Suspect]
     Indication: ACUTE MYOCARDIAL INFARCTION
     Dosage: 2.5 MG, DAILY, PREFILLED SYRINGE 2.5 MG/0.5 ML
     Route: 042
     Dates: start: 20121207, end: 20121208
  6. ARIXTRA [Suspect]
     Indication: HYPERTONIA
     Dosage: 2.5 MG, DAILY, PREFILLED SYRINGE 2.5 MG/0.5 ML
     Route: 042
     Dates: start: 20121207, end: 20121208
  7. BISOPROLOL [Concomitant]
  8. RAMIPRIL [Concomitant]
  9. FURIX [Concomitant]
     Dosage: TAKEDA PHARMA AB
  10. MORFIN [Concomitant]
     Dosage: MEDA
  11. DAONIL [Concomitant]
     Dosage: SANOFI-AVENTIS AB
  12. SPIRONOLAKTON [Concomitant]

REACTIONS (1)
  - Gastrointestinal haemorrhage [Fatal]
